FAERS Safety Report 8503492-1 (Version None)
Quarter: 2012Q3

REPORT INFORMATION
  Report Type: 
  Country: None (occurrence: None)
  Receive Date: 20120711
  Receipt Date: 20120703
  Transmission Date: 20120928
  Serious: Yes (Hospitalization)
  Sender: FDA-Public Use
  Company Number: FR-GLAXOSMITHKLINE-B0811939A

PATIENT
  Sex: Male

DRUGS (15)
  1. MALOCIDE [Concomitant]
  2. NEXIUM [Suspect]
     Indication: PRODUCT USED FOR UNKNOWN INDICATION
     Route: 048
     Dates: start: 20120501, end: 20120524
  3. ATACAND [Concomitant]
  4. LASIX [Concomitant]
  5. ASPIRIN [Concomitant]
  6. GLIMEPIRIDE [Concomitant]
  7. NEORAL [Suspect]
     Indication: PRODUCT USED FOR UNKNOWN INDICATION
     Route: 048
     Dates: start: 20120505, end: 20120515
  8. ALDACTONE [Concomitant]
  9. SIMVASTATIN [Concomitant]
  10. VALGANCICLOVIR HCL [Concomitant]
  11. VALACYCLOVIR HYDROCHLORIDE [Suspect]
     Indication: PRODUCT USED FOR UNKNOWN INDICATION
     Route: 048
     Dates: start: 20120503, end: 20120524
  12. ESIDRIX [Concomitant]
  13. ALLOPURINOL [Concomitant]
  14. CELLCEPT [Concomitant]
  15. PREDNISOLONE [Concomitant]

REACTIONS (3)
  - CONVULSION [None]
  - ENCEPHALOPATHY [None]
  - CONFUSIONAL STATE [None]
